FAERS Safety Report 8731513 (Version 6)
Quarter: 2013Q1

REPORT INFORMATION
  Report Type: Spontaneous
  Country: GB (occurrence: GB)
  Receive Date: 20120820
  Receipt Date: 20130115
  Transmission Date: 20140127
  Serious: Yes (Disabling, Other)
  Sender: FDA-Public Use
  Company Number: PHFR2012GB004547

PATIENT
  Age: 36 Year
  Sex: Male
  Weight: 89.4 kg

DRUGS (4)
  1. CLOZARIL [Suspect]
     Indication: SCHIZOPHRENIA
     Dosage: 500 MG, (150 MG MANE/ 350 MG NOCTE)
     Route: 048
     Dates: start: 201107
  2. VENLAFAXINE [Concomitant]
     Indication: DEPRESSION
     Dosage: 225 MG, UNK
     Route: 048
     Dates: start: 2010
  3. ETOPAN [Concomitant]
     Indication: PAIN
     Dosage: 600 MG, DAILY
     Route: 048
  4. ETANERCEPT [Concomitant]

REACTIONS (5)
  - Ankylosing spondylitis [Not Recovered/Not Resolved]
  - Arthralgia [Unknown]
  - Dyspnoea [Unknown]
  - Fatigue [Unknown]
  - C-reactive protein increased [Unknown]
